FAERS Safety Report 19059515 (Version 1)
Quarter: 2021Q1

REPORT INFORMATION
  Report Type: Spontaneous
  Country: US (occurrence: US)
  Receive Date: 20210326
  Receipt Date: 20210326
  Transmission Date: 20210420
  Serious: Yes (Other)
  Sender: FDA-Public Use
  Company Number: US-SA-2021SA101538

PATIENT
  Sex: Female

DRUGS (1)
  1. DUPIXENT [Suspect]
     Active Substance: DUPILUMAB
     Indication: ECZEMA
     Dosage: 300 MG, QOW
     Dates: start: 201709

REACTIONS (6)
  - Laryngitis [Unknown]
  - Aphonia [Unknown]
  - Throat irritation [Unknown]
  - Hepatic infection [Unknown]
  - Staphylococcal infection [Unknown]
  - Eczema [Unknown]
